FAERS Safety Report 24378956 (Version 1)
Quarter: 2024Q3

REPORT INFORMATION
  Report Type: Report from Study
  Country: US (occurrence: US)
  Receive Date: 20240930
  Receipt Date: 20240930
  Transmission Date: 20241016
  Serious: Yes (Other)
  Sender: ROCHE
  Company Number: US-ROCHE-10000087275

PATIENT
  Age: 70 Year
  Sex: Male

DRUGS (1)
  1. ERIVEDGE [Suspect]
     Active Substance: VISMODEGIB
     Indication: Basal cell carcinoma
     Dosage: TAKE 1 CAPSULE (150MG) BY MOUTH DAILY WITH OR WITHOUT FOOD. SWALLOW WHOLE.
     Route: 048

REACTIONS (3)
  - Eye pain [Unknown]
  - Malignant neoplasm of eye [Unknown]
  - Ill-defined disorder [Unknown]
